FAERS Safety Report 7955432-1 (Version None)
Quarter: 2011Q4

REPORT INFORMATION
  Report Type: 
  Country: None (occurrence: None)
  Receive Date: 20111202
  Receipt Date: 20111116
  Transmission Date: 20120403
  Serious: Yes (Other)
  Sender: FDA-Public Use
  Company Number: PL-ROCHE-1014138

PATIENT
  Age: 59 Year
  Sex: Female

DRUGS (2)
  1. NAVELBINE [Suspect]
     Indication: BREAST CANCER
     Dates: start: 20110301
  2. CAPECITABINE [Suspect]
     Indication: BREAST CANCER
     Dosage: TWO DOSES DAILY FOR 14 DAYS
     Dates: start: 20100101

REACTIONS (3)
  - LYMPHADENOPATHY [None]
  - HEPATIC LESION [None]
  - GENERAL PHYSICAL HEALTH DETERIORATION [None]
